FAERS Safety Report 25428163 (Version 1)
Quarter: 2025Q2

REPORT INFORMATION
  Report Type: Spontaneous
  Country: US (occurrence: US)
  Receive Date: 20250612
  Receipt Date: 20250612
  Transmission Date: 20250717
  Serious: No
  Sender: CIPLA
  Company Number: US-CIPLA LTD.-2025US06810

PATIENT

DRUGS (1)
  1. ALBUTEROL [Suspect]
     Active Substance: ALBUTEROL
     Indication: Bronchitis chronic
     Route: 065
     Dates: start: 20250528

REACTIONS (6)
  - Product dose omission issue [Unknown]
  - Product substitution issue [Unknown]
  - Device breakage [Unknown]
  - Device malfunction [Unknown]
  - Device connection issue [Unknown]
  - Product leakage [Unknown]

NARRATIVE: CASE EVENT DATE: 20250528
